FAERS Safety Report 7094541-9 (Version None)
Quarter: 2010Q4

REPORT INFORMATION
  Report Type: 
  Country: None (occurrence: None)
  Receive Date: 20101110
  Receipt Date: 20101103
  Transmission Date: 20110411
  Serious: Yes (Other)
  Sender: FDA-Public Use
  Company Number: US-PFIZER INC-2010140318

PATIENT
  Sex: Female
  Weight: 132.88 kg

DRUGS (15)
  1. CHANTIX [Suspect]
     Indication: SMOKING CESSATION THERAPY
     Dosage: 0.5 MG, 1X/DAY
     Route: 048
     Dates: start: 20100717, end: 20100701
  2. CHANTIX [Suspect]
     Dosage: 0.5 MG, 2X/DAY
     Route: 048
     Dates: start: 20100701
  3. GABAPENTIN [Concomitant]
     Dosage: UNK
  4. NORCO [Concomitant]
     Dosage: UNK
  5. DURAGESIC-100 [Concomitant]
     Dosage: UNK
  6. CELEXA [Concomitant]
     Dosage: UNK
  7. LEVOTHYROXINE [Concomitant]
     Dosage: UNK
  8. PROMETHAZINE HYDROCHLORIDE [Concomitant]
     Dosage: UNK
  9. SOMA [Concomitant]
     Dosage: UNK
  10. TRAZODONE [Concomitant]
     Dosage: UNK
  11. LISINOPRIL [Concomitant]
     Dosage: UNK
  12. PRAVACHOL [Concomitant]
     Dosage: UNK
  13. ATARAX [Concomitant]
     Dosage: UNK
  14. BELLADONNA EXTRACT [Concomitant]
     Dosage: UNK
  15. PHENOBARBITAL [Concomitant]
     Dosage: UNK

REACTIONS (3)
  - AGITATION [None]
  - BLOOD PRESSURE INCREASED [None]
  - COMPULSIONS [None]
